FAERS Safety Report 12540591 (Version 1)
Quarter: 2016Q3

REPORT INFORMATION
  Report Type: Spontaneous
  Country: US (occurrence: US)
  Receive Date: 20160708
  Receipt Date: 20160708
  Transmission Date: 20161109
  Serious: No
  Sender: FDA-Public Use
  Company Number: US-TEVA-651426USA

PATIENT
  Age: 63 Year
  Sex: Male

DRUGS (2)
  1. ZECUITY [Suspect]
     Active Substance: SUMATRIPTAN SUCCINATE
     Indication: MIGRAINE
     Route: 062
     Dates: start: 20160406, end: 20160406
  2. ZECUITY [Suspect]
     Active Substance: SUMATRIPTAN SUCCINATE
     Route: 062
     Dates: start: 20160411, end: 20160411

REACTIONS (6)
  - Application site rash [Unknown]
  - Application site pain [Unknown]
  - Incorrect drug administration duration [Unknown]
  - Application site erythema [Unknown]
  - Drug ineffective [Unknown]
  - Drug hypersensitivity [Unknown]

NARRATIVE: CASE EVENT DATE: 20160406
